FAERS Safety Report 6639204-6 (Version None)
Quarter: 2010Q1

REPORT INFORMATION
  Report Type: 
  Country: None (occurrence: None)
  Receive Date: 20100312
  Receipt Date: 20100304
  Transmission Date: 20100710
  Serious: Yes (Hospitalization, Other)
  Sender: FDA-Public Use
  Company Number: 2010SP002304

PATIENT
  Age: 37 Year
  Sex: Male
  Weight: 70 kg

DRUGS (7)
  1. REMERON [Suspect]
     Indication: DEPRESSION
     Dosage: 15 MG;QD;PO
     Route: 048
     Dates: start: 20091225
  2. ABILIT [Concomitant]
  3. PAXIL [Concomitant]
  4. MEILAX [Concomitant]
  5. MYSLEE [Concomitant]
  6. SILECE [Concomitant]
  7. MICARDIS [Concomitant]

REACTIONS (2)
  - HYPOKALAEMIA [None]
  - RHABDOMYOLYSIS [None]
